FAERS Safety Report 19763209 (Version 1)
Quarter: 2021Q3

REPORT INFORMATION
  Report Type: Spontaneous
  Country: FR (occurrence: FR)
  Receive Date: 20210830
  Receipt Date: 20210830
  Transmission Date: 20211014
  Serious: Yes (Hospitalization, Other)
  Sender: FDA-Public Use
  Company Number: FR-MYLANLABS-2021M1055229

PATIENT
  Age: 52 Year
  Sex: Female
  Weight: 60 kg

DRUGS (30)
  1. LANSOPRAZOLE. [Concomitant]
     Active Substance: LANSOPRAZOLE
     Indication: PRODUCT USED FOR UNKNOWN INDICATION
     Dosage: 1 DF, QD (AT EVENING)
     Route: 065
  2. LOVENOX [Concomitant]
     Active Substance: ENOXAPARIN SODIUM
     Indication: PRODUCT USED FOR UNKNOWN INDICATION
     Dosage: 4000 IU, QD
     Route: 058
  3. CYCLOPHOSPHAMIDE. [Suspect]
     Active Substance: CYCLOPHOSPHAMIDE
     Indication: PROPHYLAXIS AGAINST GRAFT VERSUS HOST DISEASE
     Dosage: 50 MILLIGRAM/KILOGRAM
     Route: 042
     Dates: start: 20200705, end: 20200706
  4. NEORAL [Suspect]
     Active Substance: CYCLOSPORINE
     Indication: IMMUNOSUPPRESSION
     Dosage: 3 MILLIGRAM/KILOGRAM
     Route: 048
     Dates: start: 20200707
  5. ZELTREX [Concomitant]
     Active Substance: VALACYCLOVIR HYDROCHLORIDE
     Indication: ANTI-INFECTIVE THERAPY
     Dosage: 500 MG, BID
     Route: 065
  6. CLAMOXYL                           /00249601/ [Concomitant]
     Active Substance: AMOXICILLIN
     Dosage: 2 DF
     Route: 065
  7. SULFATE DE MAGNESIUM LAVOISIER [Concomitant]
     Indication: PRODUCT USED FOR UNKNOWN INDICATION
     Dosage: 3 G, Q24H
     Route: 042
  8. SULFATE DE MAGNESIUM LAVOISIER [Concomitant]
     Dosage: UNK
     Route: 065
  9. MYCOPHENOLATE MOFETIL. [Suspect]
     Active Substance: MYCOPHENOLATE MOFETIL
     Indication: GRAFT VERSUS HOST DISEASE
     Dosage: 300 MILLIGRAM/KILOGRAM
     Route: 048
     Dates: start: 20200707, end: 20200814
  10. FOLINATE CALCIUM [Concomitant]
     Active Substance: LEUCOVORIN CALCIUM
     Indication: PRODUCT USED FOR UNKNOWN INDICATION
     Dosage: 30 MILLIGRAM, QD (IN EVENING)
     Route: 065
  11. OROCAL VITAMINE D3                 /00944201/ [Concomitant]
     Active Substance: CALCIUM CARBONATE\CHOLECALCIFEROL
     Indication: PRODUCT USED FOR UNKNOWN INDICATION
     Dosage: 2 DF, QD (AT NOON)
     Route: 065
  12. THIOTEPA. [Concomitant]
     Active Substance: THIOTEPA
     Indication: IMMUNOSUPPRESSION
     Dosage: 5 MG/KG, UNKNOWN
     Route: 042
     Dates: start: 20201026, end: 20201026
  13. PREDNISONE. [Concomitant]
     Active Substance: PREDNISONE
     Indication: PRODUCT USED FOR UNKNOWN INDICATION
     Dosage: 40 MG, QD (AT MORNING)
     Route: 065
  14. POSACONAZOLE [Concomitant]
     Active Substance: POSACONAZOLE
     Indication: INFECTION PROPHYLAXIS
     Dosage: 100 MG, QD (3 DOSES IN MORNING)
     Route: 065
  15. BACTRIM [Concomitant]
     Active Substance: SULFAMETHOXAZOLE\TRIMETHOPRIM
     Indication: INFECTION PROPHYLAXIS
     Dosage: 1 DF, TIW (MONDAY, WEDNESDAY, FRIDAY)
     Route: 065
  16. LOXEN L P [Concomitant]
     Active Substance: NICARDIPINE HYDROCHLORIDE
     Indication: PRODUCT USED FOR UNKNOWN INDICATION
     Dosage: 100 MILLIGRAM, QD (50 MG, BID)
     Route: 065
  17. NEORAL [Suspect]
     Active Substance: CYCLOSPORINE
     Indication: PROPHYLAXIS AGAINST GRAFT VERSUS HOST DISEASE
     Dosage: 1.6 MILLILITER, QD (0.8 ML, BID)
     Route: 048
  18. NEORAL [Suspect]
     Active Substance: CYCLOSPORINE
     Dosage: 3 MILLIGRAM/KILOGRAM
     Route: 042
     Dates: start: 20200707
  19. FLUDARABINE [Concomitant]
     Active Substance: FLUDARABINE PHOSPHATE
     Indication: IMMUNOSUPPRESSION
     Dosage: 30 MG/M2, UNKNOWN
     Route: 042
     Dates: start: 20200627, end: 20200630
  20. OXAZEPAM. [Concomitant]
     Active Substance: OXAZEPAM
     Indication: PRODUCT USED FOR UNKNOWN INDICATION
     Dosage: 50 MG, QD (NIGHT)
     Route: 065
  21. LANSOPRAZOLE. [Concomitant]
     Active Substance: LANSOPRAZOLE
     Dosage: 30 MG, QD
     Route: 065
  22. CLAMOXYL                           /00249601/ [Concomitant]
     Active Substance: AMOXICILLIN
     Indication: INFECTION PROPHYLAXIS
     Dosage: 1 G, BID (MORNING AND EVENING)
     Route: 065
  23. PONATINIB [Concomitant]
     Active Substance: PONATINIB
     Indication: PRODUCT USED FOR UNKNOWN INDICATION
     Dosage: 30 MG, Q24H
     Route: 065
     Dates: end: 20200926
  24. URSO [Concomitant]
     Active Substance: URSODIOL
     Indication: PRODUCT USED FOR UNKNOWN INDICATION
     Dosage: 1 DF, TID
     Route: 065
  25. SERESTA [Concomitant]
     Active Substance: OXAZEPAM
     Indication: PRODUCT USED FOR UNKNOWN INDICATION
     Dosage: 1 DF, QD (AT EVENING)
     Route: 065
  26. PRIMPERAN [Concomitant]
     Active Substance: METOCLOPRAMIDE HYDROCHLORIDE
     Indication: NAUSEA
     Dosage: 3 DOSAGE FORM, QD (1 DF, TID)
     Route: 065
  27. BUSULFAN. [Concomitant]
     Active Substance: BUSULFAN
     Indication: IMMUNOSUPPRESSION
     Dosage: 3.2 MILLIGRAM/KILOGRAM
     Route: 042
     Dates: start: 20200627, end: 20200629
  28. AMLOR [Concomitant]
     Active Substance: AMLODIPINE BESYLATE
     Indication: PRODUCT USED FOR UNKNOWN INDICATION
     Dosage: 1 DF, QD
     Route: 065
  29. CORTANCYL [Concomitant]
     Active Substance: PREDNISONE
     Indication: IMMUNOSUPPRESSION
     Dosage: 1.5 DF, QD
     Route: 065
  30. FOLINORAL [Concomitant]
     Active Substance: LEUCOVORIN CALCIUM
     Indication: PRODUCT USED FOR UNKNOWN INDICATION
     Dosage: 1 DF, QW (EVERY SUNDAY)
     Route: 065

REACTIONS (7)
  - Catatonia [Recovered/Resolved]
  - Coma [Unknown]
  - Asthenia [Unknown]
  - Clonic convulsion [Unknown]
  - Product use in unapproved indication [Unknown]
  - Major depression [Unknown]
  - Encephalitis [Not Recovered/Not Resolved]

NARRATIVE: CASE EVENT DATE: 20200924
